FAERS Safety Report 21044548 (Version 1)
Quarter: 2022Q3

REPORT INFORMATION
  Report Type: Spontaneous
  Country: JP (occurrence: JP)
  Receive Date: 20220705
  Receipt Date: 20220705
  Transmission Date: 20221027
  Serious: Yes (Hospitalization, Other)
  Sender: FDA-Public Use
  Company Number: JP-TAKEDA-2021TUS047310

PATIENT
  Age: 52 Year
  Sex: Female
  Weight: 36 kg

DRUGS (3)
  1. LIALDA [Suspect]
     Active Substance: MESALAMINE
     Indication: Colitis ulcerative
     Dosage: 4800 MILLIGRAM, QD
     Route: 048
     Dates: start: 20191216, end: 20191223
  2. PREDNISOLONE [Concomitant]
     Active Substance: PREDNISOLONE
     Dosage: 60 MILLIGRAM, QD
     Route: 065
  3. ALBUMIN TANNATE [Concomitant]
     Active Substance: ALBUMIN TANNATE
     Indication: Colitis ulcerative
     Dosage: 1500 MILLIGRAM, Q8HR
     Route: 048
     Dates: start: 20191209, end: 20191223

REACTIONS (4)
  - Haematochezia [Recovered/Resolved]
  - Drug ineffective [Unknown]
  - Blood test abnormal [Unknown]
  - Off label use [Unknown]

NARRATIVE: CASE EVENT DATE: 20191223
